FAERS Safety Report 10334765 (Version 1)
Quarter: 2014Q3

REPORT INFORMATION
  Report Type: Spontaneous
  Country: US (occurrence: None)
  Receive Date: 20140721
  Receipt Date: 20140721
  Transmission Date: 20150326
  Serious: Yes (Hospitalization)
  Sender: FDA-Public Use
  Company Number: US-ZYDUS-004133

PATIENT
  Age: 14 Month
  Sex: Male

DRUGS (1)
  1. DONEPEZIL (DONEPEZIL) [Suspect]
     Active Substance: DONEPEZIL

REACTIONS (8)
  - Bradycardia [None]
  - Somnolence [None]
  - Vomiting [None]
  - Mental status changes [None]
  - Nodal rhythm [None]
  - Drooling [None]
  - Diarrhoea [None]
  - Heart rate increased [None]
